FAERS Safety Report 4345963-8 (Version None)
Quarter: 2004Q2

REPORT INFORMATION
  Report Type: 
  Country: None (occurrence: None)
  Receive Date: 20040420
  Receipt Date: 20040209
  Transmission Date: 20050107
  Serious: Yes (Disabling)
  Sender: FDA-Public Use
  Company Number: 2004-BP-01278AU

PATIENT
  Age: 58 Year
  Sex: Male

DRUGS (4)
  1. MOBIC [Suspect]
     Indication: COMPRESSION FRACTURE
     Dosage: 7.5 MG (7.5 MG, ONE DAILY) PO
     Route: 048
     Dates: start: 20031115, end: 20040119
  2. MOBIC [Suspect]
     Indication: OSTEOARTHRITIS
     Dosage: 7.5 MG (7.5 MG, ONE DAILY) PO
     Route: 048
     Dates: start: 20031115, end: 20040119
  3. FOSAMAX [Concomitant]
  4. ANTIDEPRESSANT(NR) [Concomitant]

REACTIONS (3)
  - CHEST PAIN [None]
  - DYSGEUSIA [None]
  - GASTROOESOPHAGEAL REFLUX DISEASE [None]
